FAERS Safety Report 6125467-2 (Version None)
Quarter: 2009Q1

REPORT INFORMATION
  Report Type: 
  Country: None (occurrence: None)
  Receive Date: 20090320
  Receipt Date: 20090312
  Transmission Date: 20090719
  Serious: Yes (Other)
  Sender: FDA-Public Use
  Company Number: PHHY2009TR08984

PATIENT
  Sex: Male
  Weight: 77 kg

DRUGS (3)
  1. ZOMETA [Suspect]
     Indication: METASTASES TO BONE
     Dosage: EVERY 28 DAYS
     Route: 042
     Dates: start: 20060301, end: 20090310
  2. ZOMETA [Suspect]
     Indication: PROSTATE CANCER
  3. LUCRIN [Concomitant]

REACTIONS (1)
  - OSTEONECROSIS [None]
